FAERS Safety Report 11115818 (Version 1)
Quarter: 2015Q2

REPORT INFORMATION
  Report Type: Spontaneous
  Country: US (occurrence: None)
  Receive Date: 20150504
  Receipt Date: 20150504
  Transmission Date: 20150821
  Serious: Yes (Hospitalization)
  Sender: FDA-Public Use
  Company Number: 1468423

PATIENT
  Age: 65 Year
  Sex: Female

DRUGS (5)
  1. LOMOTIL (UNITED STATES) (ATROPINE SULFATE, DIPHENOCYLATE HYDROCHLORIDE) [Concomitant]
  2. GEMCITABINE [Concomitant]
     Active Substance: GEMCITABINE\GEMCITABINE HYDROCHLORIDE
  3. CISPLATIN. [Concomitant]
     Active Substance: CISPLATIN
  4. AVASTIN [Suspect]
     Active Substance: BEVACIZUMAB
     Indication: ADENOCARCINOMA OF THE CERVIX
     Dosage: START WINTER, 2 WEEKS ON, 1 WEEK OFF, FOR 3 CYCLES, UNKNOWN
     Dates: start: 2013
  5. COLOSTRUM HUMAN [Concomitant]
     Active Substance: HUMAN COLOSTRUM

REACTIONS (2)
  - Diverticulitis [None]
  - Abdominal pain upper [None]

NARRATIVE: CASE EVENT DATE: 20140629
